FAERS Safety Report 5390141-7 (Version None)
Quarter: 2007Q3

REPORT INFORMATION
  Report Type: 
  Country: None (occurrence: None)
  Receive Date: 20070716
  Receipt Date: 20070716
  Transmission Date: 20080115
  Serious: Yes (Other)
  Sender: FDA-Public Use
  Company Number: None

PATIENT
  Age: 63 Year
  Sex: Male
  Weight: 145.151 kg

DRUGS (2)
  1. HUMIRA [Suspect]
     Indication: PSORIATIC ARTHROPATHY
     Dosage: 40 MG EVERY 10 DAYS SUBCONJUNCT
     Route: 057
     Dates: start: 20050527, end: 20070529
  2. METHOTREXATE [Suspect]
     Dosage: 17.5 MG EVERY WEEK PO
     Route: 048

REACTIONS (4)
  - CONDITION AGGRAVATED [None]
  - LUNG INFILTRATION [None]
  - PNEUMONIA LEGIONELLA [None]
  - PSORIATIC ARTHROPATHY [None]
